FAERS Safety Report 13415803 (Version 1)
Quarter: 2017Q2

REPORT INFORMATION
  Report Type: Spontaneous
  Country: JP (occurrence: JP)
  Receive Date: 20170407
  Receipt Date: 20170407
  Transmission Date: 20170830
  Serious: Yes (Other)
  Sender: FDA-Public Use
  Company Number: JP-PFIZER INC-2017152316

PATIENT
  Age: 37 Year
  Sex: Female

DRUGS (2)
  1. CELECOX [Suspect]
     Active Substance: CELECOXIB
     Dosage: 1300 MG, 1X/DAY
     Route: 048
     Dates: start: 20170330, end: 20170330
  2. CELECOX [Suspect]
     Active Substance: CELECOXIB
     Dosage: 6800 MG, 1X/DAY
     Route: 048
     Dates: start: 20170330, end: 20170330

REACTIONS (3)
  - Coma [Unknown]
  - Intentional overdose [Unknown]
  - Suicide attempt [Unknown]

NARRATIVE: CASE EVENT DATE: 201703
